FAERS Safety Report 9011794 (Version 1)
Quarter: 2012Q4

REPORT INFORMATION
  Report Type: Spontaneous
  Country: US (occurrence: None)
  Receive Date: 20121228
  Receipt Date: 20121228
  Transmission Date: 20130627
  Serious: Yes (Other)
  Sender: FDA-Public Use
  Company Number: CIP-2012-00447

PATIENT

DRUGS (10)
  1. IRINOTECAN INJECTION (IRINOTECAN) [Suspect]
     Indication: METASTATIC COLORECTAL CANCER
  2. IRINOTECAN INJECTION (IRINOTECAN) [Suspect]
     Indication: METASTASES TO LIVER
  3. IRINOTECAN INJECTION (IRINOTECAN) [Suspect]
     Indication: METASTATIC COLORECTAL CANCER
  4. IRINOTECAN INJECTION (IRINOTECAN) [Suspect]
     Indication: METASTASES TO LIVER
  5. FOLINIC ACID [Suspect]
     Indication: METASTATIC COLORECTAL CANCER
  6. FOLINIC ACID [Suspect]
     Indication: METASTASES TO LIVER
  7. FLUOROURACIL (FLUOROURACIL) [Suspect]
     Indication: METASTATIC COLORECTAL CANCER
  8. FLUOROURACIL (FLUOROURACIL) [Suspect]
     Indication: METASTASES TO LIVER
  9. OXALIPLATIN (OXALIPLATIN) [Suspect]
     Indication: METASTATIC COLORECTAL CANCER
  10. OXALIPLATIN (OXALIPLATIN) [Suspect]
     Indication: METASTASES TO LIVER

REACTIONS (1)
  - Neurological symptom [None]
